FAERS Safety Report 22140271 (Version 1)
Quarter: 2023Q1

REPORT INFORMATION
  Report Type: Spontaneous
  Country: US (occurrence: US)
  Receive Date: 20230327
  Receipt Date: 20230327
  Transmission Date: 20230417
  Serious: Yes (Hospitalization)
  Sender: FDA-Public Use
  Company Number: US-BAYER-2023A039891

PATIENT
  Age: 9 Year
  Sex: Male

DRUGS (2)
  1. AFRIN NO DRIP NIGHT CHAMOMILE [Suspect]
     Active Substance: OXYMETAZOLINE HYDROCHLORIDE
     Indication: Nasal congestion
     Dosage: (ONE SPRAY IN EACH NOSTRIL)
     Route: 055
     Dates: start: 20230322, end: 20230322
  2. AFRIN NO DRIP SEVERE CONGESTION [Suspect]
     Active Substance: OXYMETAZOLINE HYDROCHLORIDE
     Indication: Nasal congestion
     Dosage: ONE SPRAY IN EACH NOSTRIL
     Route: 048
     Dates: start: 20230322, end: 20230322

REACTIONS (1)
  - Hypersensitivity [Recovering/Resolving]

NARRATIVE: CASE EVENT DATE: 20230322
